FAERS Safety Report 23283893 (Version 1)
Quarter: 2023Q4

REPORT INFORMATION
  Report Type: Spontaneous
  Country: CN (occurrence: CN)
  Receive Date: 20231211
  Receipt Date: 20231211
  Transmission Date: 20240110
  Serious: Yes (Hospitalization)
  Sender: FDA-Public Use
  Company Number: CN-ELI_LILLY_AND_COMPANY-CN202311017352

PATIENT
  Age: 34 Year
  Sex: Male
  Weight: 97 kg

DRUGS (2)
  1. DULAGLUTIDE [Suspect]
     Active Substance: DULAGLUTIDE
     Indication: Weight decreased
     Dosage: 1.5 MG, WEEKLY (1/W)
     Route: 058
     Dates: start: 20231029, end: 20231029
  2. DULAGLUTIDE [Suspect]
     Active Substance: DULAGLUTIDE
     Indication: Blood glucose increased

REACTIONS (3)
  - Diabetic ketoacidosis [Recovering/Resolving]
  - Hyperkalaemia [Recovering/Resolving]
  - Acute kidney injury [Recovering/Resolving]

NARRATIVE: CASE EVENT DATE: 20231102
